FAERS Safety Report 11239964 (Version 1)
Quarter: 2015Q3

REPORT INFORMATION
  Report Type: Spontaneous
  Country: JP (occurrence: JP)
  Receive Date: 20150706
  Receipt Date: 20150706
  Transmission Date: 20151125
  Serious: Yes (Other)
  Sender: FDA-Public Use
  Company Number: JP-PFIZER INC-2015217201

PATIENT
  Sex: Male

DRUGS (1)
  1. ZITHROMAC SR [Suspect]
     Active Substance: AZITHROMYCIN DIHYDRATE
     Indication: ASPIRATION
     Dosage: SINGLE DOSE
     Route: 048
     Dates: start: 201506, end: 201506

REACTIONS (3)
  - Pyrexia [Unknown]
  - Aspiration [Unknown]
  - Drug ineffective [Unknown]

NARRATIVE: CASE EVENT DATE: 20150627
